APPROVED DRUG PRODUCT: PREFEST
Active Ingredient: ESTRADIOL; NORGESTIMATE
Strength: 1MG,1MG;N/A,0.09MG **Federal Register determination that product was not discontinued or withdrawn for safety or effectiveness reasons**
Dosage Form/Route: TABLET;ORAL
Application: N021040 | Product #001
Applicant: TEVA WOMENS HEALTH INC
Approved: Oct 22, 1999 | RLD: Yes | RS: No | Type: DISCN